FAERS Safety Report 21719226 (Version 1)
Quarter: 2022Q4

REPORT INFORMATION
  Report Type: Spontaneous
  Country: DE (occurrence: DE)
  Receive Date: 20221213
  Receipt Date: 20221213
  Transmission Date: 20230113
  Serious: Yes (Other)
  Sender: FDA-Public Use
  Company Number: DE-ALKEM LABORATORIES LIMITED-DE-ALKEM-2022-13761

PATIENT
  Sex: Female

DRUGS (12)
  1. BRIVARACETAM [Suspect]
     Active Substance: BRIVARACETAM
     Indication: Seizure
     Dosage: 300 MILLIGRAM, QD,  EVERY 1 DAY
     Route: 065
  2. LAMOTRIGINE [Suspect]
     Active Substance: LAMOTRIGINE
     Indication: Seizure
     Dosage: 200 MILLIGRAM, QD,  EVERY 1 DAY
     Route: 065
     Dates: start: 202101, end: 202104
  3. LACOSAMIDE [Suspect]
     Active Substance: LACOSAMIDE
     Indication: Seizure
     Dosage: 300 MILLIGRAM, QD,  EVERY 1 DAY
     Route: 065
     Dates: start: 202104
  4. LACOSAMIDE [Suspect]
     Active Substance: LACOSAMIDE
     Dosage: UNK
     Route: 065
  5. LACOSAMIDE [Suspect]
     Active Substance: LACOSAMIDE
     Dosage: UNK, QD
     Route: 065
  6. LEVETIRACETAM [Suspect]
     Active Substance: LEVETIRACETAM
     Indication: Seizure
     Dosage: 3000 MILLIGRAM, QD
     Route: 065
  7. OXCARBAZEPINE [Suspect]
     Active Substance: OXCARBAZEPINE
     Indication: Hyponatraemia
     Dosage: 3000 MILLIGRAM, QD,  EVERY 1 DAY
     Route: 065
     Dates: start: 202003
  8. OXCARBAZEPINE [Suspect]
     Active Substance: OXCARBAZEPINE
     Indication: Seizure
     Dosage: 2100 MILLIGRAM, QD, EVERY 1 DAY
     Route: 065
  9. CENOBAMATE [Suspect]
     Active Substance: CENOBAMATE
     Indication: Product used for unknown indication
     Dosage: 200 MILLIGRAM, QD, EVERY 1 DAY
     Route: 065
  10. CENOBAMATE [Suspect]
     Active Substance: CENOBAMATE
     Dosage: UNK
     Route: 065
  11. CARBAMAZEPINE [Concomitant]
     Active Substance: CARBAMAZEPINE
     Indication: Product used for unknown indication
     Dosage: UNK
     Route: 065
  12. CARBAMAZEPINE [Concomitant]
     Active Substance: CARBAMAZEPINE
     Dosage: UNK
     Route: 065

REACTIONS (11)
  - Epilepsy surgery [Unknown]
  - Generalised tonic-clonic seizure [Recovered/Resolved]
  - Seizure [Unknown]
  - Amnesia [Unknown]
  - Aura [Unknown]
  - Hyponatraemia [Recovering/Resolving]
  - Mental disorder [Unknown]
  - Sleep disorder [Recovering/Resolving]
  - Drug ineffective [Unknown]
  - Overdose [Unknown]
  - Off label use [Unknown]

NARRATIVE: CASE EVENT DATE: 20210714
